FAERS Safety Report 16869524 (Version 1)
Quarter: 2019Q3

REPORT INFORMATION
  Report Type: Spontaneous
  Country: US (occurrence: US)
  Receive Date: 20190930
  Receipt Date: 20190930
  Transmission Date: 20191005
  Serious: No
  Sender: FDA-Public Use
  Company Number: US-FRESENIUS KABI-FK201910645

PATIENT
  Sex: Male

DRUGS (1)
  1. XYLOCAINE [Suspect]
     Active Substance: LIDOCAINE HYDROCHLORIDE
     Indication: NERVE BLOCK
     Route: 065

REACTIONS (1)
  - Drug ineffective [Recovered/Resolved]
